FAERS Safety Report 14631179 (Version 1)
Quarter: 2018Q1

REPORT INFORMATION
  Report Type: Spontaneous
  Country: US (occurrence: US)
  Receive Date: 20180313
  Receipt Date: 20180313
  Transmission Date: 20180509
  Serious: Yes (Other)
  Sender: FDA-Public Use
  Company Number: US-MYLANLABS-2018M1015278

PATIENT
  Age: 68 Year
  Sex: Male

DRUGS (1)
  1. ZOLEDRONIC ACID [Suspect]
     Active Substance: ZOLEDRONIC ACID
     Indication: METASTASES TO BONE
     Dosage: MONTHLY; INFUSION
     Route: 050

REACTIONS (2)
  - Unmasking of previously unidentified disease [Recovering/Resolving]
  - Osteomalacia [Recovering/Resolving]
